FAERS Safety Report 5139866-9 (Version None)
Quarter: 2006Q4

REPORT INFORMATION
  Report Type: 
  Country: None (occurrence: None)
  Receive Date: 20061025
  Receipt Date: 20061025
  Transmission Date: 20070319
  Serious: Yes (Hospitalization)
  Sender: FDA-Public Use
  Company Number: None

PATIENT
  Age: 44 Year
  Sex: Male

DRUGS (2)
  1. SIMVASTATIN [Suspect]
     Dosage: 10 MG PO QD
     Route: 048
     Dates: start: 20060629, end: 20060919
  2. HYDROCHLOROTHIAZIDE [Suspect]
     Dosage: 12.5 MG PO QD
     Route: 048
     Dates: start: 20061028

REACTIONS (1)
  - PANCREATITIS [None]
